FAERS Safety Report 5786763-1 (Version None)
Quarter: 2008Q2

REPORT INFORMATION
  Report Type: 
  Country: None (occurrence: None)
  Receive Date: 20080618
  Receipt Date: 20080606
  Transmission Date: 20081010
  Serious: Yes (Hospitalization)
  Sender: FDA-Public Use
  Company Number: 2008AL006711

PATIENT
  Age: 37 Year
  Sex: Female

DRUGS (2)
  1. SPIRONOLACTONE [Suspect]
     Indication: ASCITES
     Dosage: 25 MG; QD; PO
     Route: 048
  2. FUROSEMIDE [Concomitant]

REACTIONS (1)
  - RASH GENERALISED [None]
